FAERS Safety Report 7682642-3 (Version None)
Quarter: 2011Q3

REPORT INFORMATION
  Report Type: 
  Country: None (occurrence: None)
  Receive Date: 20110815
  Receipt Date: 20110801
  Transmission Date: 20111222
  Serious: Yes (Other)
  Sender: FDA-Public Use
  Company Number: US-ELI_LILLY_AND_COMPANY-US201108000780

PATIENT
  Sex: Female
  Weight: 72.109 kg

DRUGS (7)
  1. SINGULAIR [Concomitant]
  2. GLUCOPHAGE [Concomitant]
  3. HUMALOG MIX 75/25 [Suspect]
     Dosage: 16 U, EACH MORNING
  4. HUMALOG MIX 75/25 [Suspect]
     Indication: DIABETES MELLITUS
     Dosage: 16 U, EACH MORNING
  5. HUMALOG MIX 75/25 [Suspect]
     Dosage: 20 U, EACH EVENING
  6. METFORMIN HCL [Concomitant]
  7. HUMALOG MIX 75/25 [Suspect]
     Dosage: 20 U, EACH EVENING

REACTIONS (10)
  - COLON OPERATION [None]
  - BLADDER REPAIR [None]
  - HYSTERECTOMY [None]
  - HERNIA REPAIR [None]
  - WEIGHT DECREASED [None]
  - INJECTION SITE PAIN [None]
  - MEMORY IMPAIRMENT [None]
  - GALLBLADDER OPERATION [None]
  - WEIGHT INCREASED [None]
  - NASOPHARYNGITIS [None]
